FAERS Safety Report 6327376-2 (Version None)
Quarter: 2009Q3

REPORT INFORMATION
  Report Type: 
  Country: None (occurrence: None)
  Receive Date: 20090825
  Receipt Date: 20090814
  Transmission Date: 20100115
  Serious: Yes (Hospitalization)
  Sender: FDA-Public Use
  Company Number: US-JNJFOC-20090805941

PATIENT
  Sex: Female
  Weight: 53.7 kg

DRUGS (18)
  1. REMICADE [Suspect]
     Indication: CROHN'S DISEASE
     Route: 042
  2. MINOCYCLINE HCL [Suspect]
     Indication: STAPHYLOCOCCAL INFECTION
     Dosage: TOTAL OF 2 WEEKS
  3. PENTASA [Concomitant]
  4. PRILOSEC [Concomitant]
     Route: 048
  5. FOLIC ACID [Concomitant]
     Route: 048
  6. LACTAID [Concomitant]
     Route: 048
  7. ELAVIL [Concomitant]
     Route: 048
  8. CULTURELLE [Concomitant]
  9. VITAMIN B6 [Concomitant]
  10. METHOTREXATE [Concomitant]
     Route: 058
  11. ALBUTEROL [Concomitant]
     Route: 055
  12. FLOVENT [Concomitant]
     Route: 055
  13. MONTELUKAST [Concomitant]
     Route: 048
  14. MULTI-VITAMINS [Concomitant]
     Route: 048
  15. OMEGA 3 FATTY ACID [Concomitant]
     Route: 048
  16. CALCIUM [Concomitant]
     Route: 048
  17. SALICYLIC ACID [Concomitant]
  18. NU IRON [Concomitant]
     Route: 048

REACTIONS (1)
  - PANCREATITIS ACUTE [None]
